FAERS Safety Report 10707459 (Version 3)
Quarter: 2015Q2

REPORT INFORMATION
  Report Type: Spontaneous
  Country: US (occurrence: US)
  Receive Date: 20150113
  Receipt Date: 20150602
  Transmission Date: 20150821
  Serious: No
  Sender: FDA-Public Use
  Company Number: US-CELGENEUS-USA-2014111293

PATIENT
  Sex: Male

DRUGS (1)
  1. OTEZLA [Suspect]
     Active Substance: APREMILAST
     Indication: PSORIASIS
     Dosage: 60 MILLIGRAM
     Route: 048
     Dates: start: 20141016

REACTIONS (2)
  - Decreased appetite [Recovered/Resolved]
  - Nausea [Recovered/Resolved]
